FAERS Safety Report 9668027 (Version 1)
Quarter: 2013Q4

REPORT INFORMATION
  Report Type: Report from Study
  Country: AU (occurrence: AU)
  Receive Date: 20131104
  Receipt Date: 20131104
  Transmission Date: 20140711
  Serious: Yes (Other)
  Sender: FDA-Public Use
  Company Number: AU-GLAXOSMITHKLINE-Z0016618A

PATIENT
  Age: 41 Year
  Sex: Male
  Weight: 102.9 kg

DRUGS (1)
  1. DABRAFENIB [Suspect]
     Indication: MALIGNANT MELANOMA
     Dosage: 300MG TWICE PER DAY
     Route: 048
     Dates: start: 20120316

REACTIONS (1)
  - Neurotoxicity [Recovered/Resolved]
